FAERS Safety Report 7952980-5 (Version None)
Quarter: 2011Q4

REPORT INFORMATION
  Report Type: 
  Country: None (occurrence: None)
  Receive Date: 20111201
  Receipt Date: 20111125
  Transmission Date: 20120403
  Serious: Yes (Death)
  Sender: FDA-Public Use
  Company Number: US-CELGENEUS-163-20785-11080264

PATIENT
  Sex: Female

DRUGS (8)
  1. DECADRON [Concomitant]
     Indication: PREMEDICATION
     Route: 065
  2. THALOMID [Suspect]
     Indication: MULTIPLE MYELOMA
     Dosage: 100 MILLIGRAM
     Route: 048
     Dates: start: 20100801, end: 20110101
  3. VELCADE [Concomitant]
     Route: 065
  4. ZOFRAN [Concomitant]
     Indication: PREMEDICATION
     Route: 065
  5. ZOMETA [Concomitant]
     Route: 065
  6. REVLIMID [Suspect]
     Indication: MULTIPLE MYELOMA
     Dosage: 10 MILLIGRAM
     Route: 048
     Dates: start: 20110801, end: 20110101
  7. VALTREX [Concomitant]
     Route: 065
  8. ASPIRIN [Concomitant]
     Route: 065

REACTIONS (1)
  - MULTIPLE MYELOMA [None]
